FAERS Safety Report 11363535 (Version 1)
Quarter: 2015Q3

REPORT INFORMATION
  Report Type: Spontaneous
  Country: FR (occurrence: FR)
  Receive Date: 20150811
  Receipt Date: 20150811
  Transmission Date: 20151125
  Serious: Yes (Hospitalization)
  Sender: FDA-Public Use
  Company Number: FR-009507513-1508FRA000799

PATIENT
  Age: 41 Year
  Sex: Female

DRUGS (6)
  1. OVITRELLE [Suspect]
     Active Substance: CHORIOGONADOTROPIN ALFA
     Indication: HORMONE THERAPY
     Dosage: UNK
     Dates: start: 20150314, end: 20150421
  2. MENOPUR [Suspect]
     Active Substance: FOLLICLE STIMULATING HORMONE BETA POLYPEPTIDE\LUTROPIN ALFA
     Indication: OVARIAN DISORDER
  3. ORGALUTRAN [Suspect]
     Active Substance: GANIRELIX ACETATE
     Indication: HORMONE THERAPY
     Dosage: UNK
     Dates: start: 20150313, end: 20150411
  4. ORGALUTRAN [Suspect]
     Active Substance: GANIRELIX ACETATE
     Indication: OVARIAN DISORDER
  5. MENOPUR [Suspect]
     Active Substance: FOLLICLE STIMULATING HORMONE BETA POLYPEPTIDE\LUTROPIN ALFA
     Indication: HORMONE THERAPY
     Dosage: UNK
     Dates: start: 20150308, end: 20150411
  6. OVITRELLE [Suspect]
     Active Substance: CHORIOGONADOTROPIN ALFA
     Indication: OVARIAN DISORDER

REACTIONS (1)
  - Cerebral venous thrombosis [Recovering/Resolving]

NARRATIVE: CASE EVENT DATE: 20150617
